FAERS Safety Report 15811653 (Version 1)
Quarter: 2019Q1

REPORT INFORMATION
  Report Type: Spontaneous
  Country: US (occurrence: US)
  Receive Date: 20190104
  Receipt Date: 20190104
  Transmission Date: 20190417
  Serious: No
  Sender: FDA-Public Use
  Company Number: None

PATIENT

DRUGS (2)
  1. KENALOG-40 [Suspect]
     Active Substance: TRIAMCINOLONE ACETONIDE
     Dosage: SUSPENSION INJECTION 40 MG PER 1 ML
  2. KENALOG-40 [Suspect]
     Active Substance: TRIAMCINOLONE ACETONIDE
     Dosage: SUSPENSION INJECTION 200 MG PER 5 ML MULTIPLE DOSE VIAL

REACTIONS (10)
  - Accidental overdose [None]
  - Palpitations [None]
  - Product packaging confusion [None]
  - Product appearance confusion [None]
  - Blood glucose increased [None]
  - Product dispensing error [None]
  - Dizziness [None]
  - Injection site pain [None]
  - Insomnia [None]
  - Feeling jittery [None]
